FAERS Safety Report 7676308-3 (Version None)
Quarter: 2011Q3

REPORT INFORMATION
  Report Type: 
  Country: None (occurrence: None)
  Receive Date: 20110811
  Receipt Date: 20110803
  Transmission Date: 20111222
  Serious: No
  Sender: FDA-Public Use
  Company Number: US-BAYER-2011-069756

PATIENT
  Sex: Female

DRUGS (1)
  1. MIRENA [Suspect]

REACTIONS (4)
  - BACK PAIN [None]
  - MENSTRUATION IRREGULAR [None]
  - DEVICE EXPULSION [None]
  - ABDOMINAL DISTENSION [None]
